FAERS Safety Report 6084721-3 (Version None)
Quarter: 2009Q1

REPORT INFORMATION
  Report Type: 
  Country: None (occurrence: None)
  Receive Date: 20090217
  Receipt Date: 20080827
  Transmission Date: 20090719
  Serious: Yes (Hospitalization)
  Sender: FDA-Public Use
  Company Number: 2008EU002109

PATIENT
  Age: 12 Year
  Sex: Female

DRUGS (2)
  1. TACROLIMUS [Suspect]
     Indication: RENAL TRANSPLANT
     Dates: end: 20071101
  2. CORTICOSTEROID NOS(CORTICOSTEROID NOS) [Suspect]
     Indication: RENAL TRANSPLANT

REACTIONS (4)
  - BK VIRUS INFECTION [None]
  - FOCAL SEGMENTAL GLOMERULOSCLEROSIS [None]
  - POLYOMAVIRUS-ASSOCIATED NEPHROPATHY [None]
  - VIRUS URINE TEST POSITIVE [None]
